FAERS Safety Report 6252154-2 (Version None)
Quarter: 2009Q2

REPORT INFORMATION
  Report Type: 
  Country: None (occurrence: None)
  Receive Date: 20090629
  Receipt Date: 20090616
  Transmission Date: 20091009
  Serious: Yes (Other)
  Sender: FDA-Public Use
  Company Number: 230001L08TUR

PATIENT
  Age: 41 Year
  Sex: Female

DRUGS (6)
  1. REBIF [Suspect]
     Indication: MULTIPLE SCLEROSIS
     Dosage: 22 MCG, 3 IN 1 WEEKS, SUBCUTANEOUS, 44MCG, 3 IN 1 WEEKS, 1.71 MCG, 27.5 MCG, 33 MCG, 44 MCG
     Route: 058
     Dates: start: 20070701, end: 20070101
  2. REBIF [Suspect]
     Indication: MULTIPLE SCLEROSIS
     Dosage: 22 MCG, 3 IN 1 WEEKS, SUBCUTANEOUS, 44MCG, 3 IN 1 WEEKS, 1.71 MCG, 27.5 MCG, 33 MCG, 44 MCG
     Route: 058
  3. REBIF [Suspect]
     Indication: MULTIPLE SCLEROSIS
     Dosage: 22 MCG, 3 IN 1 WEEKS, SUBCUTANEOUS, 44MCG, 3 IN 1 WEEKS, 1.71 MCG, 27.5 MCG, 33 MCG, 44 MCG
     Route: 058
  4. REBIF [Suspect]
     Indication: MULTIPLE SCLEROSIS
     Dosage: 22 MCG, 3 IN 1 WEEKS, SUBCUTANEOUS, 44MCG, 3 IN 1 WEEKS, 1.71 MCG, 27.5 MCG, 33 MCG, 44 MCG
     Route: 058
  5. REBIF [Suspect]
     Indication: MULTIPLE SCLEROSIS
     Dosage: 22 MCG, 3 IN 1 WEEKS, SUBCUTANEOUS, 44MCG, 3 IN 1 WEEKS, 1.71 MCG, 27.5 MCG, 33 MCG, 44 MCG
     Route: 058
  6. REBIF [Suspect]
     Indication: MULTIPLE SCLEROSIS
     Dosage: 22 MCG, 3 IN 1 WEEKS, SUBCUTANEOUS, 44MCG, 3 IN 1 WEEKS, 1.71 MCG, 27.5 MCG, 33 MCG, 44 MCG
     Route: 058
     Dates: start: 20070101

REACTIONS (4)
  - ANGIOEDEMA [None]
  - CIRCUMORAL OEDEMA [None]
  - PERIORBITAL OEDEMA [None]
  - URTICARIA [None]
